FAERS Safety Report 22125998 (Version 1)
Quarter: 2023Q1

REPORT INFORMATION
  Report Type: Spontaneous
  Country: US (occurrence: US)
  Receive Date: 20230322
  Receipt Date: 20230322
  Transmission Date: 20230417
  Serious: No
  Sender: FDA-Public Use
  Company Number: US-ALLERGAN-2214687US

PATIENT
  Sex: Female

DRUGS (4)
  1. LUMIGAN [Suspect]
     Active Substance: BIMATOPROST
     Indication: Glaucoma
     Dosage: 2 GTT
     Route: 047
  2. DORZOLAMIDE [Suspect]
     Active Substance: DORZOLAMIDE
     Indication: Glaucoma
     Dosage: UNK
  3. DORZOLAMIDE [Suspect]
     Active Substance: DORZOLAMIDE
     Dosage: UNK
  4. METOPROLOL [Concomitant]
     Active Substance: METOPROLOL
     Indication: Hypertension

REACTIONS (11)
  - Ophthalmic migraine [Recovered/Resolved]
  - Chalazion [Recovered/Resolved]
  - Visual impairment [Recovering/Resolving]
  - Excessive eye blinking [Recovering/Resolving]
  - Ocular hyperaemia [Recovered/Resolved]
  - Hordeolum [Recovered/Resolved]
  - Dry eye [Recovered/Resolved]
  - Eye irritation [Recovering/Resolving]
  - Eye pain [Recovered/Resolved]
  - Eye discharge [Recovered/Resolved]
  - Vision blurred [Recovered/Resolved]
